FAERS Safety Report 7376865-0 (Version None)
Quarter: 2011Q1

REPORT INFORMATION
  Report Type: 
  Country: None (occurrence: None)
  Receive Date: 20110326
  Receipt Date: 20110318
  Transmission Date: 20110831
  Serious: Yes (Hospitalization, Other)
  Sender: FDA-Public Use
  Company Number: US-PFIZER INC-2011065383

PATIENT
  Sex: Female

DRUGS (3)
  1. INSULIN DETEMIR [Suspect]
  2. METFORMIN HCL [Suspect]
  3. GLIPIZIDE [Suspect]

REACTIONS (3)
  - BLOOD GLUCOSE ABNORMAL [None]
  - PALPITATIONS [None]
  - BLOOD GLUCOSE DECREASED [None]
